FAERS Safety Report 6121156-9 (Version None)
Quarter: 2009Q1

REPORT INFORMATION
  Report Type: 
  Country: None (occurrence: None)
  Receive Date: 20090317
  Receipt Date: 20090305
  Transmission Date: 20090719
  Serious: Yes (Other)
  Sender: FDA-Public Use
  Company Number: B0561379A

PATIENT
  Age: 24 Year
  Weight: 74 kg

DRUGS (7)
  1. ZIDOVUDINE [Suspect]
     Indication: HIV INFECTION
  2. LAMIVUDINE [Suspect]
     Indication: HIV INFECTION
  3. FLUCONAZOLE [Suspect]
     Dosage: 400MG PER DAY
  4. EFAVIRENZ [Suspect]
     Indication: HIV INFECTION
  5. FLUCYTOSINE [Concomitant]
     Dosage: 10G PER DAY
  6. AMPHOTERICIN B [Concomitant]
     Dosage: 35MG PER DAY
     Route: 042
  7. VORICONAZOLE [Concomitant]

REACTIONS (9)
  - BLOOD LACTIC ACID INCREASED [None]
  - BRAIN OEDEMA [None]
  - DRUG RESISTANCE [None]
  - ENCEPHALITIS [None]
  - HEADACHE [None]
  - IMMUNE RECONSTITUTION SYNDROME [None]
  - PLEOCYTOSIS [None]
  - PROTEIN TOTAL INCREASED [None]
  - SPLENOMEGALY [None]
